FAERS Safety Report 6309552-8 (Version None)
Quarter: 2009Q3

REPORT INFORMATION
  Report Type: 
  Country: None (occurrence: None)
  Receive Date: 20090814
  Receipt Date: 20090805
  Transmission Date: 20100115
  Serious: Yes (Hospitalization)
  Sender: FDA-Public Use
  Company Number: RU-JNJFOC-20090802517

PATIENT
  Sex: Male
  Weight: 60 kg

DRUGS (1)
  1. RISPOLEPT QUICKLET [Suspect]
     Indication: SCHIZOPHRENIA
     Route: 048

REACTIONS (4)
  - ANXIETY DISORDER [None]
  - DEPERSONALISATION [None]
  - DEREALISATION [None]
  - DYSSOMNIA [None]
